FAERS Safety Report 10811956 (Version 3)
Quarter: 2015Q2

REPORT INFORMATION
  Report Type: Report from Study
  Country: CH (occurrence: CH)
  Receive Date: 20150217
  Receipt Date: 20150618
  Transmission Date: 20150821
  Serious: Yes (Other)
  Sender: FDA-Public Use
  Company Number: CH-ABBVIE-15P-151-1347877-00

PATIENT
  Sex: Female
  Weight: 150 kg

DRUGS (1)
  1. DUODOPA [Suspect]
     Active Substance: CARBIDOPA\LEVODOPA
     Indication: PARKINSON^S DISEASE
     Dosage: CONTINUOUS RATE: 5.5ML/H DURING 24H: 24H THERAPY
     Route: 065
     Dates: start: 20121114

REACTIONS (5)
  - Asthenia [Unknown]
  - Enterocutaneous fistula [Unknown]
  - Stoma site erythema [Recovering/Resolving]
  - Aneurysm [Unknown]
  - Stoma site discharge [Unknown]
